FAERS Safety Report 9008787 (Version 2)
Quarter: 2013Q1

REPORT INFORMATION
  Report Type: Spontaneous
  Country: DE (occurrence: DE)
  Receive Date: 20130111
  Receipt Date: 20130201
  Transmission Date: 20140127
  Serious: Yes (Hospitalization, Other)
  Sender: FDA-Public Use
  Company Number: DE-JNJFOC-20130102497

PATIENT
  Age: 63 Year
  Sex: Male
  Weight: 115 kg

DRUGS (2)
  1. HALDOL [Suspect]
     Indication: ACCIDENTAL EXPOSURE TO PRODUCT
     Route: 048
     Dates: start: 20130105, end: 20130105
  2. SEROQUEL [Suspect]
     Indication: ACCIDENTAL EXPOSURE TO PRODUCT
     Route: 048
     Dates: start: 20130105, end: 20130105

REACTIONS (7)
  - Accidental exposure to product [Recovered/Resolved]
  - Hypotension [Recovered/Resolved]
  - Hyperkinesia [Recovered/Resolved]
  - Extrapyramidal disorder [Recovered/Resolved]
  - Nausea [Recovered/Resolved]
  - Dry mouth [Recovered/Resolved]
  - Somnolence [Recovered/Resolved]
